FAERS Safety Report 6806792-6 (Version None)
Quarter: 2010Q2

REPORT INFORMATION
  Report Type: 
  Country: None (occurrence: None)
  Receive Date: 20100629
  Receipt Date: 20080519
  Transmission Date: 20101027
  Serious: No
  Sender: FDA-Public Use
  Company Number: US-PFIZER INC-2008037422

PATIENT
  Sex: Male
  Weight: 70.454 kg

DRUGS (4)
  1. VIAGRA [Suspect]
     Indication: ERECTILE DYSFUNCTION
     Dates: start: 20070701
  2. METFORMIN HCL [Concomitant]
     Indication: DIABETES MELLITUS
  3. LIPITOR [Concomitant]
  4. LISINOPRIL [Concomitant]

REACTIONS (4)
  - CYANOPSIA [None]
  - DRUG INEFFECTIVE [None]
  - FATIGUE [None]
  - HEADACHE [None]
